FAERS Safety Report 19885803 (Version 1)
Quarter: 2021Q3

REPORT INFORMATION
  Report Type: Spontaneous
  Country: FR (occurrence: FR)
  Receive Date: 20210927
  Receipt Date: 20210927
  Transmission Date: 20211014
  Serious: Yes (Life-Threatening)
  Sender: FDA-Public Use
  Company Number: FR-ACCORD-239929

PATIENT
  Age: 70 Year
  Sex: Male
  Weight: 124 kg

DRUGS (15)
  1. POTASSIUM [Concomitant]
     Active Substance: POTASSIUM
     Route: 048
     Dates: end: 20210819
  2. BISOPROLOL [Concomitant]
     Active Substance: BISOPROLOL
     Route: 048
     Dates: end: 20210819
  3. RIFAMPICINE [Concomitant]
     Active Substance: RIFAMPIN
     Route: 042
     Dates: start: 20210802, end: 202108
  4. PARACETAMOL [Concomitant]
     Active Substance: ACETAMINOPHEN
     Route: 048
     Dates: end: 20210819
  5. THIAMINE. [Concomitant]
     Active Substance: THIAMINE
     Route: 048
     Dates: end: 20210819
  6. METRONIDAZOLE. [Concomitant]
     Active Substance: METRONIDAZOLE
     Dosage: INCONNUE
     Route: 048
     Dates: start: 202108, end: 202108
  7. ENOXAPARIN [Interacting]
     Active Substance: ENOXAPARIN
     Indication: THROMBOSIS PROPHYLAXIS
     Route: 058
     Dates: start: 202108, end: 20210819
  8. CLOPIDOGREL [Suspect]
     Active Substance: CLOPIDOGREL BISULFATE
     Indication: CARDIOVASCULAR EVENT PROPHYLAXIS
     Route: 048
     Dates: end: 20210819
  9. THIAMINE. [Concomitant]
     Active Substance: THIAMINE
     Route: 048
     Dates: end: 20210819
  10. GENTAMICINE [Concomitant]
     Active Substance: GENTAMICIN
     Dosage: INCONNUE
     Route: 042
     Dates: start: 20210802, end: 20210805
  11. VANCOMYCINE [Concomitant]
     Active Substance: VANCOMYCIN
     Route: 042
     Dates: start: 20210802, end: 20210811
  12. LINEZOLIDE [Concomitant]
     Active Substance: LINEZOLID
     Dosage: INCONNUE
     Route: 048
     Dates: start: 202108, end: 20210816
  13. ECONAZOLE. [Concomitant]
     Active Substance: ECONAZOLE NITRATE
     Route: 003
     Dates: end: 20210819
  14. ALLOPURINOL. [Concomitant]
     Active Substance: ALLOPURINOL
     Route: 048
     Dates: end: 20210819
  15. ATORVASTATINE [Concomitant]
     Active Substance: ATORVASTATIN
     Route: 048
     Dates: end: 20210819

REACTIONS (2)
  - Shock haemorrhagic [Recovered/Resolved]
  - Drug interaction [Unknown]

NARRATIVE: CASE EVENT DATE: 20210819
